FAERS Safety Report 11855694 (Version 3)
Quarter: 2016Q1

REPORT INFORMATION
  Report Type: Spontaneous
  Country: JP (occurrence: JP)
  Receive Date: 20151221
  Receipt Date: 20160215
  Transmission Date: 20160526
  Serious: Yes (Death, Hospitalization, Other)
  Sender: FDA-Public Use
  Company Number: JP-MUNDIPHARMA DS AND PHARMACOVIGILANCE-GBR-2015-0032846

PATIENT
  Age: 88 Year
  Sex: Male

DRUGS (8)
  1. RINDERON                           /00008501/ [Concomitant]
     Active Substance: BETAMETHASONE
     Dosage: 0.4 MG / TIME
     Route: 058
     Dates: start: 20130523, end: 20130606
  2. ROPION [Concomitant]
     Active Substance: FLURBIPROFEN AXETIL
     Indication: CANCER PAIN
     Dosage: 150 MG, DAILY
     Route: 041
     Dates: start: 20130507, end: 20130613
  3. ROHYPNOL [Concomitant]
     Active Substance: FLUNITRAZEPAM
     Indication: INSOMNIA
     Dosage: 1 MG, DAILY
     Route: 041
     Dates: start: 20130507, end: 20130613
  4. OXYCODONE HYDROCHLORIDE. [Suspect]
     Active Substance: OXYCODONE HYDROCHLORIDE
     Indication: CANCER PAIN
     Dosage: 12 MG, UNK
     Route: 058
     Dates: start: 20130507, end: 20130615
  5. RINDERON                           /00008501/ [Concomitant]
     Active Substance: BETAMETHASONE
     Indication: PROPHYLAXIS
     Dosage: UNK
     Route: 041
     Dates: start: 20130606
  6. HIRNAMIN                           /00038601/ [Suspect]
     Active Substance: LEVOMEPROMAZINE
     Indication: DELIRIUM
     Dosage: 30 MG / TIME
     Route: 058
     Dates: start: 20130523, end: 20130606
  7. CONTOMIN [Concomitant]
     Active Substance: CHLORPROMAZINE
     Indication: DELIRIUM
     Dosage: UNK
     Route: 058
     Dates: start: 20130507, end: 20130523
  8. GASTER [Concomitant]
     Active Substance: FAMOTIDINE
     Indication: GASTRITIS
     Dosage: 20 MG, DAILY
     Route: 041
     Dates: start: 20130507, end: 20130613

REACTIONS (4)
  - Delirium [Unknown]
  - Injection site abscess [Recovering/Resolving]
  - Concomitant disease progression [Fatal]
  - Decreased appetite [Unknown]

NARRATIVE: CASE EVENT DATE: 20130507
